FAERS Safety Report 22154927 (Version 1)
Quarter: 2023Q1

REPORT INFORMATION
  Report Type: Report from Study
  Country: GB (occurrence: GB)
  Receive Date: 20230330
  Receipt Date: 20230330
  Transmission Date: 20230417
  Serious: Yes (Other)
  Sender: FDA-Public Use
  Company Number: GB-002147023-NVSC2023GB068349

PATIENT
  Sex: Female

DRUGS (1)
  1. OMNITROPE [Suspect]
     Active Substance: SOMATROPIN
     Indication: Hypopituitarism
     Dosage: 0.20 MG, QD (5 CARTRIDGE) (DELIVERY START DATE: 22 JUL 2022)
     Route: 058
     Dates: start: 20220728

REACTIONS (2)
  - Product contamination with body fluid [Unknown]
  - Device occlusion [Unknown]
